FAERS Safety Report 7948796-6 (Version None)
Quarter: 2011Q4

REPORT INFORMATION
  Report Type: 
  Country: None (occurrence: None)
  Receive Date: 20111130
  Receipt Date: 20111128
  Transmission Date: 20120403
  Serious: No
  Sender: FDA-Public Use
  Company Number: US-TEVA-311056USA

PATIENT
  Sex: Female
  Weight: 68.554 kg

DRUGS (6)
  1. AZILECT [Suspect]
     Indication: PARKINSON'S DISEASE
     Route: 048
     Dates: start: 20111123
  2. VITAMIN D [Concomitant]
     Indication: MEDICAL DIET
  3. LEVOTHYROXINE SODIUM [Concomitant]
     Indication: HYPOTHYROIDISM
     Route: 048
  4. MAGNESIUM SULFATE [Concomitant]
     Indication: MEDICAL DIET
  5. PREGABALIN [Concomitant]
     Indication: NEURALGIA
  6. UBIDECARENONE [Concomitant]
     Indication: NERVOUS SYSTEM DISORDER

REACTIONS (1)
  - DIZZINESS [None]
